FAERS Safety Report 4574285-5 (Version None)
Quarter: 2005Q1

REPORT INFORMATION
  Report Type: 
  Country: None (occurrence: None)
  Receive Date: 20050208
  Receipt Date: 20041206
  Transmission Date: 20050727
  Serious: No
  Sender: FDA-Public Use
  Company Number: US-GLAXOSMITHKLINE-A0536179A

PATIENT
  Age: 21 Year
  Sex: Female
  Weight: 52.3 kg

DRUGS (3)
  1. PAXIL CR [Suspect]
     Dosage: 25MG UNKNOWN
     Route: 048
  2. ZYRTEC [Concomitant]
  3. LORAZEPAM [Concomitant]

REACTIONS (4)
  - BLOOD LACTIC ACID INCREASED [None]
  - GALACTORRHOEA [None]
  - HYPERTROPHY BREAST [None]
  - WEIGHT INCREASED [None]
